FAERS Safety Report 6279237-5 (Version None)
Quarter: 2009Q3

REPORT INFORMATION
  Report Type: 
  Country: None (occurrence: None)
  Receive Date: 20090720
  Receipt Date: 20090720
  Transmission Date: 20100115
  Serious: Yes (Other)
  Sender: FDA-Public Use
  Company Number: None

PATIENT
  Age: 77 Year
  Sex: Female

DRUGS (1)
  1. DILTIAZEM HCL EXTENDED RELEASE 180MG ACTAVIS [Suspect]
     Indication: BLOOD PRESSURE MANAGEMENT
     Dosage: 180MG 1 DAILY PO (1 DOSE)
     Route: 048
     Dates: start: 20090710, end: 20090710

REACTIONS (3)
  - BLOOD PRESSURE INCREASED [None]
  - DIZZINESS [None]
  - PRODUCT SUBSTITUTION ISSUE [None]
